FAERS Safety Report 24304863 (Version 1)
Quarter: 2024Q3

REPORT INFORMATION
  Report Type: Spontaneous
  Country: US (occurrence: US)
  Receive Date: 20240910
  Receipt Date: 20240910
  Transmission Date: 20241016
  Serious: Yes (Other)
  Sender: BRISTOL MYERS SQUIBB
  Company Number: US-BRISTOL-MYERS SQUIBB COMPANY-2024-142288

PATIENT
  Age: 84 Year
  Sex: Male
  Weight: 86.18 kg

DRUGS (1)
  1. REVLIMID [Suspect]
     Active Substance: LENALIDOMIDE
     Indication: Prostate cancer
     Dosage: 3WKSON,1WKOFF
     Route: 048

REACTIONS (2)
  - Prostate cancer recurrent [Unknown]
  - Off label use [Unknown]
